FAERS Safety Report 4304497-7 (Version None)
Quarter: 2004Q1

REPORT INFORMATION
  Report Type: 
  Country: None (occurrence: None)
  Receive Date: 20040224
  Receipt Date: 20040216
  Transmission Date: 20041129
  Serious: Yes (Death, Life-Threatening)
  Sender: FDA-Public Use
  Company Number: GB-JNJFOC-20040203191

PATIENT
  Age: 59 Year
  Sex: Female

DRUGS (7)
  1. REMICADE [Suspect]
     Indication: RHEUMATOID ARTHRITIS
     Dosage: INTRAVENOUS
     Route: 042
  2. METHOTREXATE SODIUM [Concomitant]
  3. FOLIC ACID [Concomitant]
  4. ARTHROTEC [Concomitant]
  5. AMITRIPTYLINE HCL [Concomitant]
  6. HRT (ANDROGENS AND  FEMALE SEX HOMONES IN COMB) [Concomitant]
  7. CO-PROXAMOL (APOREX) [Concomitant]

REACTIONS (3)
  - BRONCHOPNEUMONIA [None]
  - PNEUMONIA STREPTOCOCCAL [None]
  - SMALL CELL LUNG CANCER METASTATIC [None]
